FAERS Safety Report 7110622-5 (Version None)
Quarter: 2010Q4

REPORT INFORMATION
  Report Type: 
  Country: None (occurrence: None)
  Receive Date: 20101118
  Receipt Date: 20101115
  Transmission Date: 20110411
  Serious: Yes (Death, Hospitalization, Other)
  Sender: FDA-Public Use
  Company Number: PHHY2008CA11779

PATIENT
  Sex: Male

DRUGS (3)
  1. SANDOSTATIN LAR [Suspect]
     Indication: CARCINOID TUMOUR
     Dosage: 40 MG, EVERY 4 WEEKS
     Route: 030
     Dates: start: 20060321
  2. SANDOSTATIN LAR [Suspect]
     Dosage: 40 MG, EVERY 4 WEEKS
     Route: 030
  3. SANDOSTATIN LAR [Suspect]
     Dosage: 60 MG EVERY 4 WEEKS
     Route: 030
     Dates: end: 20101014

REACTIONS (14)
  - ASTHENIA [None]
  - DECREASED APPETITE [None]
  - DIARRHOEA [None]
  - FLUSHING [None]
  - GENERAL PHYSICAL HEALTH DETERIORATION [None]
  - HAEMATURIA [None]
  - HEPATIC EMBOLISATION [None]
  - INTESTINAL RESECTION [None]
  - MALIGNANT NEOPLASM PROGRESSION [None]
  - NAUSEA [None]
  - NEPHROLITHIASIS [None]
  - RENAL PAIN [None]
  - TERMINAL STATE [None]
  - WEIGHT DECREASED [None]
